FAERS Safety Report 17742394 (Version 2)
Quarter: 2020Q2

REPORT INFORMATION
  Report Type: Spontaneous
  Country: US (occurrence: US)
  Receive Date: 20200504
  Receipt Date: 20200601
  Transmission Date: 20200714
  Serious: No
  Sender: FDA-Public Use
  Company Number: US-009507513-2004USA009084

PATIENT
  Age: 58 Year
  Sex: Female
  Weight: 33.1 kg

DRUGS (6)
  1. TYVASO [Suspect]
     Active Substance: TREPROSTINIL
     Dosage: 18-54 MICROGRAM, QID
     Dates: start: 202004
  2. TYVASO [Suspect]
     Active Substance: TREPROSTINIL
     Indication: PULMONARY ARTERIAL HYPERTENSION
     Dosage: STRENGTH: 0.6 MILLIGRAM PER MILLILITER;
     Dates: start: 20200410
  3. TYVASO [Suspect]
     Active Substance: TREPROSTINIL
     Dosage: UNK
     Dates: start: 2020
  4. COZAAR [Suspect]
     Active Substance: LOSARTAN POTASSIUM
     Dosage: UNK
  5. TADALAFIL. [Concomitant]
     Active Substance: TADALAFIL
     Dosage: UNK
  6. TYVASO [Suspect]
     Active Substance: TREPROSTINIL
     Dosage: 18 MICROGRAM (3 BREATHS), UNK
     Dates: start: 202004

REACTIONS (5)
  - Nausea [Unknown]
  - Blood pressure decreased [Unknown]
  - Dizziness [Unknown]
  - Asthenia [Unknown]
  - Salivary hypersecretion [Unknown]

NARRATIVE: CASE EVENT DATE: 2020
